FAERS Safety Report 10128876 (Version 1)
Quarter: 2014Q2

REPORT INFORMATION
  Report Type: Spontaneous
  Country: US (occurrence: US)
  Receive Date: 20140428
  Receipt Date: 20140428
  Transmission Date: 20141212
  Serious: No
  Sender: FDA-Public Use
  Company Number: US-GLAXOSMITHKLINE-A1042474A

PATIENT
  Age: 52 Year
  Sex: Female

DRUGS (1)
  1. AMERGE [Suspect]
     Indication: MIGRAINE
     Route: 048
     Dates: start: 20120920

REACTIONS (2)
  - Drug administration error [Recovered/Resolved]
  - Skin tightness [Unknown]
